FAERS Safety Report 4548091-1 (Version None)
Quarter: 2004Q4

REPORT INFORMATION
  Report Type: 
  Country: None (occurrence: None)
  Receive Date: 20041227
  Receipt Date: 20040928
  Transmission Date: 20050328
  Serious: No
  Sender: FDA-Public Use
  Company Number: 04P-163-0274987-00

PATIENT
  Age: 73 Year
  Sex: Male
  Weight: 98.8842 kg

DRUGS (6)
  1. HUMIRA [Suspect]
     Indication: RHEUMATOID ARTHRITIS
     Dosage: 40 MG, 1 IN 2 WK, SUBCUTANEOUS
     Route: 058
     Dates: start: 20040927
  2. ACETYLSALICYLIC ACID SRT [Concomitant]
  3. ATENOLOL [Concomitant]
  4. ISOSORBIDE MONONITRATE [Concomitant]
  5. RAMIPRIL [Concomitant]
  6. TERAZOSIN HYDROCHLORIDE [Concomitant]

REACTIONS (1)
  - INJECTION SITE BURNING [None]
